FAERS Safety Report 10248033 (Version 1)
Quarter: 2014Q2

REPORT INFORMATION
  Report Type: Spontaneous
  Country: US (occurrence: US)
  Receive Date: 20140619
  Receipt Date: 20140619
  Transmission Date: 20141212
  Serious: No
  Sender: FDA-Public Use
  Company Number: US-009507513-1406USA008511

PATIENT
  Age: 18 Year
  Sex: Male
  Weight: 112.2 kg

DRUGS (3)
  1. COPPERTONE SPORT LOTION SPF 30 [Suspect]
     Indication: PROPHYLAXIS AGAINST SOLAR RADIATION
     Dosage: UNK, PRN
     Route: 061
     Dates: start: 201406
  2. ASPIRIN [Concomitant]
     Indication: PRODUCT USED FOR UNKNOWN INDICATION
     Dosage: UNK, UNKNOWN
  3. VIAGRA [Concomitant]
     Indication: PRODUCT USED FOR UNKNOWN INDICATION
     Dosage: UNK, UNKNOWN

REACTIONS (3)
  - Sunburn [Not Recovered/Not Resolved]
  - Scab [Not Recovered/Not Resolved]
  - Drug ineffective [Unknown]
